FAERS Safety Report 6470958 (Version 16)
Quarter: 2013Q3

REPORT INFORMATION
  Report Type: Spontaneous
  Country: US (occurrence: US)
  Receive Date: 20071119
  Receipt Date: 20130904
  Transmission Date: 20140515
  Serious: Yes (Congenital Anomaly, Other)
  Sender: FDA-Public Use
  Company Number: US-PFIZER INC-2007095357

PATIENT
  Sex: Male
  Weight: 3 kg

DRUGS (30)
  1. ZOLOFT [Suspect]
     Indication: POSTPARTUM DEPRESSION
     Dosage: 50 MG, 1X/DAY
     Route: 064
  2. ZOLOFT [Suspect]
     Indication: DEPRESSION
     Dosage: UNK
     Route: 064
     Dates: start: 20050824, end: 20060521
  3. SERTRALINE HCL [Suspect]
     Dosage: UNK
     Route: 064
     Dates: start: 20050824, end: 20060521
  4. PREDNISONE [Concomitant]
     Dosage: UNK
     Route: 064
  5. PRENATAL VITAMINS [Concomitant]
     Route: 064
  6. ALBUTEROL [Concomitant]
     Dosage: UNK
     Route: 064
  7. PHENERGAN WITH CODEINE [Concomitant]
     Dosage: UNK
     Route: 064
  8. CAL-NATE [Concomitant]
     Dosage: UNK
     Route: 064
  9. METOCLOPRAMIDE [Concomitant]
     Dosage: UNK
     Route: 064
  10. PROMETHAZINE [Concomitant]
     Dosage: UNK
     Route: 064
  11. AZITHROMYCIN [Concomitant]
     Dosage: UNK
     Route: 064
  12. HYDROCODONE [Concomitant]
     Dosage: UNK
     Route: 064
  13. PROMETHAZINE WITH CODEINE [Concomitant]
     Dosage: UNK
     Route: 064
  14. MYTUSSIN AC [Concomitant]
     Dosage: UNK
     Route: 064
  15. TOPAMAX [Concomitant]
     Dosage: UNK
     Route: 064
  16. TUMS [Concomitant]
     Dosage: UNK
     Route: 064
  17. TYLENOL [Concomitant]
     Dosage: UNK
     Route: 064
  18. AMITRIPTYLINE [Concomitant]
     Dosage: UNK
     Route: 064
  19. HYDROCODONE /APAP [Concomitant]
     Dosage: UNK
     Route: 064
  20. ALPRAZOLAM [Concomitant]
     Dosage: UNK
     Route: 064
  21. AMBIEN [Concomitant]
     Dosage: UNK
     Route: 064
  22. ANALPRAM-HC [Concomitant]
     Dosage: 1% CREAM, UNK
     Route: 064
  23. XANAX [Concomitant]
     Dosage: UNK
     Route: 064
  24. LAMISIL [Concomitant]
     Dosage: UNK
     Route: 064
  25. FLONASE [Concomitant]
     Dosage: UNK
     Route: 064
  26. VI-Q-TUSS [Concomitant]
     Dosage: UNK
     Route: 064
  27. FLOVENT [Concomitant]
     Dosage: UNK
     Route: 064
  28. SINGULAIR [Concomitant]
     Dosage: UNK
     Route: 064
  29. MIGRIN A [Concomitant]
     Dosage: UNK
     Route: 064
  30. FUROSEMIDE [Concomitant]
     Dosage: UNK
     Route: 064

REACTIONS (26)
  - Foetal exposure during pregnancy [Unknown]
  - Aortic valve stenosis [Unknown]
  - Pneumothorax [Unknown]
  - Cardiac septal defect [Unknown]
  - Congenital heart valve disorder [Unknown]
  - Persistent foetal circulation [Recovering/Resolving]
  - Patent ductus arteriosus [Recovered/Resolved]
  - Congenital aortic valve incompetence [Unknown]
  - Dysphagia [Unknown]
  - Hypothalamo-pituitary disorder [Unknown]
  - Pneumonia [Unknown]
  - Respiratory distress [Unknown]
  - Lethargy [Unknown]
  - Feeding disorder of infancy or early childhood [Unknown]
  - Bone disorder [Unknown]
  - Juvenile idiopathic arthritis [Recovering/Resolving]
  - Hypoxia [Unknown]
  - Eczema [Unknown]
  - Ear infection [Unknown]
  - Blood pressure systolic decreased [Unknown]
  - Developmental delay [Unknown]
  - Walking disability [Unknown]
  - Atelectasis [Recovered/Resolved]
  - Congenital anomaly [Unknown]
  - Atrial septal defect [Unknown]
  - Hypertension [Unknown]
